FAERS Safety Report 4475283-2 (Version None)
Quarter: 2004Q4

REPORT INFORMATION
  Report Type: 
  Country: None (occurrence: None)
  Receive Date: 20041015
  Receipt Date: 20041006
  Transmission Date: 20050328
  Serious: Yes (Disabling)
  Sender: FDA-Public Use
  Company Number: FR-BRISTOL-MYERS SQUIBB COMPANY-12724860

PATIENT
  Age: 62 Year
  Sex: Male

DRUGS (5)
  1. PRAVASTATIN [Suspect]
     Indication: HYPERCHOLESTEROLAEMIA
     Route: 048
     Dates: start: 20011023, end: 20040715
  2. APROVEL TABS 150 MG [Concomitant]
     Route: 048
     Dates: start: 19990901
  3. NOCTAMIDE [Concomitant]
     Indication: INSOMNIA
     Route: 048
     Dates: start: 20020101
  4. ALPRAZOLAM [Concomitant]
     Indication: ANXIETY
     Dosage: 0.5 MG TWICE PER DAY (USING 1 MG TABLETS)
     Route: 048
     Dates: start: 20040101
  5. EFFEXOR [Concomitant]
     Indication: DEPRESSION
     Route: 048
     Dates: start: 20030101

REACTIONS (1)
  - TENDON RUPTURE [None]
